FAERS Safety Report 9410849 (Version 2)
Quarter: 2013Q4

REPORT INFORMATION
  Report Type: Spontaneous
  Country: US (occurrence: US)
  Receive Date: 20130719
  Receipt Date: 20131226
  Transmission Date: 20140711
  Serious: Yes (Hospitalization)
  Sender: FDA-Public Use
  Company Number: US-B.I. PHARMACEUTICALS,INC./RIDGEFIELD-2013-BI-20965BP

PATIENT
  Sex: Male
  Weight: 86.18 kg

DRUGS (14)
  1. PRADAXA [Suspect]
     Indication: ANTICOAGULANT THERAPY
     Dosage: 150 MG
     Route: 048
     Dates: start: 20120118, end: 20120406
  2. ALBUTEROL [Concomitant]
     Indication: DYSPNOEA
     Route: 055
  3. DRONEDARONE [Concomitant]
     Dosage: 800 MG
  4. LASIX [Concomitant]
     Dosage: 80 MG
  5. CARVEDILOL [Concomitant]
     Dosage: 50 MG
  6. HYDRALAZINE [Concomitant]
     Dosage: 200 MG
  7. ISOSORBIDE MONONITRATE [Concomitant]
     Dosage: 30 MG
  8. KLOR-CON [Concomitant]
     Dosage: 20 MEQ
  9. AMITIZA [Concomitant]
     Dosage: 48 MCG
  10. HUMALOG [Concomitant]
     Dosage: 40 U
     Route: 058
  11. PRAVASTATIN [Concomitant]
     Dosage: 80 MG
  12. LACTULOSE [Concomitant]
     Dosage: 10 G
     Route: 048
  13. DOCUSATE [Concomitant]
     Dosage: 100 MG
     Route: 048
  14. LANTUS [Concomitant]
     Dosage: 50 U
     Route: 058

REACTIONS (3)
  - Gastrointestinal haemorrhage [Unknown]
  - Anaemia [Unknown]
  - Chest pain [Unknown]
